FAERS Safety Report 7672678-0 (Version None)
Quarter: 2011Q3

REPORT INFORMATION
  Report Type: 
  Country: None (occurrence: None)
  Receive Date: 20110804
  Receipt Date: 20110728
  Transmission Date: 20111222
  Serious: Yes (Other)
  Sender: FDA-Public Use
  Company Number: TCI2011A04125

PATIENT
  Age: 74 Year
  Sex: Male

DRUGS (7)
  1. ZOLADEX [Concomitant]
  2. ACTOS [Suspect]
     Indication: TYPE 2 DIABETES MELLITUS
     Dosage: 15 MG (15 MG, 1 IN 1 D), PER ORAL
     Route: 048
     Dates: start: 20080529, end: 20110617
  3. METFORMIN HCL [Concomitant]
  4. AMARYL [Concomitant]
  5. PRAVASTATIN [Concomitant]
  6. BONALON (ALENDRONATE SODIUM) [Concomitant]
  7. EPADEL-S (ETHYL ICOSAPENTATE) [Concomitant]

REACTIONS (2)
  - HAEMATURIA [None]
  - BLADDER TRANSITIONAL CELL CARCINOMA [None]
